FAERS Safety Report 10373807 (Version 1)
Quarter: 2014Q1

REPORT INFORMATION
  Report Type: Spontaneous
  Country: US (occurrence: None)
  Receive Date: 20140306
  Receipt Date: 20140306
  Transmission Date: 20141002
  Serious: Yes (Hospitalization, Other)
  Sender: FDA-Public Use
  Company Number: 163-21880-13094097

PATIENT
  Age: 58 Year
  Sex: Female

DRUGS (5)
  1. REVLIMID (LENALIDOMIDE) (25 MILLIGRAM, CAPSULES) [Suspect]
     Indication: PLASMA CELL MYELOMA
     Route: 048
     Dates: start: 20080608, end: 2008
  2. ALLOPURINOL [Suspect]
     Indication: PRODUCT USED FOR UNKNOWN INDICATION
  3. ZOMETA (ZSOLENDRONIC ACID) (UNKNOWN) [Concomitant]
  4. ASA (ACETYLSALICYLIC ACID) (UNKNOWN) [Concomitant]
  5. METOPROLOL (METOPROLOL) [Concomitant]

REACTIONS (1)
  - Stevens-Johnson syndrome [None]
